FAERS Safety Report 5232280-7 (Version None)
Quarter: 2007Q1

REPORT INFORMATION
  Report Type: 
  Country: None (occurrence: None)
  Receive Date: 20070207
  Receipt Date: 20070129
  Transmission Date: 20070707
  Serious: Yes (Hospitalization)
  Sender: FDA-Public Use
  Company Number: PHBS2007BE01007

PATIENT
  Age: 70 Year
  Sex: Female

DRUGS (7)
  1. ZOMETA [Suspect]
     Indication: METASTASES TO BONE
     Dosage: 4 MG, MONTHLY
     Route: 065
     Dates: start: 20060501, end: 20061215
  2. EPIRUBICIN [Concomitant]
     Indication: BREAST CANCER
     Dosage: UNK, UNK
     Route: 065
     Dates: start: 20061101
  3. ELTHYRONE [Concomitant]
     Dosage: 75 UG/D
     Route: 065
  4. EMCONCOR [Concomitant]
     Dosage: 5 MG/D
     Route: 065
  5. MS CONTIN [Concomitant]
     Dosage: 30 MG, BID
     Route: 065
     Dates: start: 20061001
  6. ZANTAC [Concomitant]
     Dosage: 300 MG, QD
     Route: 065
  7. XANAX [Concomitant]
     Dosage: 0.5 MG, TID
     Route: 065

REACTIONS (7)
  - BLOOD CALCIUM DECREASED [None]
  - CAROTID ARTERY STENOSIS [None]
  - CEREBRAL ISCHAEMIA [None]
  - CEREBROVASCULAR ACCIDENT [None]
  - HEMIPLEGIA [None]
  - HYPOCALCAEMIA [None]
  - MUSCLE SPASMS [None]
